FAERS Safety Report 4550004-3 (Version None)
Quarter: 2005Q1

REPORT INFORMATION
  Report Type: 
  Country: None (occurrence: None)
  Receive Date: 20050112
  Receipt Date: 20050103
  Transmission Date: 20050727
  Serious: Yes (Life-Threatening)
  Sender: FDA-Public Use
  Company Number: FR-BRISTOL-MYERS SQUIBB COMPANY-12811956

PATIENT
  Age: 37 Year
  Sex: Male

DRUGS (6)
  1. VIDEX [Suspect]
     Indication: ACQUIRED IMMUNODEFICIENCY SYNDROME
     Route: 048
     Dates: start: 20040225
  2. KALETRA [Suspect]
     Indication: ACQUIRED IMMUNODEFICIENCY SYNDROME
     Route: 048
     Dates: start: 20040121
  3. BACTRIM [Suspect]
     Route: 048
     Dates: start: 20040121
  4. LEDERFOLINE [Suspect]
     Route: 048
     Dates: start: 20040121, end: 20041113
  5. TAXOTERE [Suspect]
     Indication: KAPOSI'S SARCOMA
     Route: 042
     Dates: start: 20040126, end: 20040927
  6. VIREAD [Suspect]
     Indication: ACQUIRED IMMUNODEFICIENCY SYNDROME
     Route: 048
     Dates: start: 20040225

REACTIONS (3)
  - ASCITES [None]
  - CARDIAC TAMPONADE [None]
  - GENERALISED OEDEMA [None]
